FAERS Safety Report 6253842-4 (Version None)
Quarter: 2009Q3

REPORT INFORMATION
  Report Type: 
  Country: None (occurrence: None)
  Receive Date: 20090702
  Receipt Date: 20070517
  Transmission Date: 20100115
  Serious: Yes (Other)
  Sender: FDA-Public Use
  Company Number: US-ASTRAZENECA-2006UW25011

PATIENT
  Age: 49 Year
  Sex: Female
  Weight: 115.4 kg

DRUGS (15)
  1. SEROQUEL [Suspect]
     Route: 048
     Dates: start: 20021018
  2. SEROQUEL [Suspect]
     Route: 048
     Dates: start: 20021018
  3. ABILIFY [Suspect]
     Dosage: 5-15 MG
     Dates: start: 20021209
  4. ABILIFY [Suspect]
     Dosage: 10 - 15 MG DAILY
     Dates: start: 20021209
  5. ZYPREXA [Suspect]
     Dates: start: 20030219
  6. LITHIUM [Concomitant]
     Dates: start: 20020101, end: 20030101
  7. ZOLOFT [Concomitant]
     Dates: start: 20020101, end: 20030101
  8. EFFEXOR [Concomitant]
     Dates: start: 20020101, end: 20030101
  9. EFFEXOR [Concomitant]
     Dosage: 37.5 MG - 450 MG DAILY
     Dates: start: 20021018
  10. LISINOPRIL [Concomitant]
     Dates: start: 20021028
  11. ASPIRIN [Concomitant]
     Dates: start: 20031117
  12. COLACE [Concomitant]
     Dates: start: 20021112
  13. PHENERGAN [Concomitant]
     Indication: NAUSEA
     Route: 048
     Dates: start: 20021114
  14. PHENERGAN [Concomitant]
     Indication: ARTHRALGIA
     Route: 048
     Dates: start: 20021114
  15. NICOTINE [Concomitant]
     Dates: start: 20020922

REACTIONS (4)
  - DIABETES MELLITUS [None]
  - DIABETES MELLITUS INADEQUATE CONTROL [None]
  - DIABETIC NEUROPATHY [None]
  - TYPE 1 DIABETES MELLITUS [None]
